FAERS Safety Report 23367562 (Version 1)
Quarter: 2024Q1

REPORT INFORMATION
  Report Type: Spontaneous
  Country: US (occurrence: US)
  Receive Date: 20240104
  Receipt Date: 20240104
  Transmission Date: 20240409
  Serious: No
  Sender: FDA-Public Use
  Company Number: US-PFIZER INC-PV202300209805

PATIENT
  Age: 54 Year

DRUGS (3)
  1. BRAFTOVI [Interacting]
     Active Substance: ENCORAFENIB
     Indication: Rectal cancer
     Dosage: 300 MG BY MOUTH ONCE PER DAY
     Route: 048
  2. CARBATROL [Interacting]
     Active Substance: CARBAMAZEPINE
     Dosage: UNK
  3. PHENOBARBITAL [Interacting]
     Active Substance: PHENOBARBITAL
     Dosage: UNK

REACTIONS (2)
  - Drug interaction [Unknown]
  - Contraindicated product administered [Unknown]
